FAERS Safety Report 8986653 (Version 1)
Quarter: 2012Q4

REPORT INFORMATION
  Report Type: Spontaneous
  Country: US (occurrence: None)
  Receive Date: 20121219
  Receipt Date: 20121219
  Transmission Date: 20130627
  Serious: Yes (Other)
  Sender: FDA-Public Use
  Company Number: None

PATIENT
  Age: 12 Year
  Sex: Female
  Weight: 42.64 kg

DRUGS (1)
  1. TAMIFLU [Suspect]
     Indication: INFLUENZA A VIRUS INFECTION
     Dosage: 75 mg twice daily po
     Route: 048
     Dates: start: 20121212, end: 20121212

REACTIONS (4)
  - Hallucinations, mixed [None]
  - Nightmare [None]
  - Fear [None]
  - Anxiety [None]
